FAERS Safety Report 5521842-5 (Version None)
Quarter: 2007Q4

REPORT INFORMATION
  Report Type: 
  Country: None (occurrence: None)
  Receive Date: 20071120
  Receipt Date: 20071108
  Transmission Date: 20080405
  Serious: Yes (Hospitalization)
  Sender: FDA-Public Use
  Company Number: US-ROCHE-525757

PATIENT
  Age: 64 Year
  Sex: Female

DRUGS (1)
  1. CAPECITABINE [Suspect]
     Dosage: TREATMENT WAS STARTED WITH 1500MG OF ORAL CAPECITABINE TWICE DAILY MONDAY TO FRIDAY AND CONCOMITANT+
     Route: 048

REACTIONS (3)
  - DIARRHOEA [None]
  - MUCOSAL INFLAMMATION [None]
  - PANCYTOPENIA [None]
